FAERS Safety Report 6267938-4 (Version None)
Quarter: 2009Q3

REPORT INFORMATION
  Report Type: 
  Country: None (occurrence: None)
  Receive Date: 20090713
  Receipt Date: 20090702
  Transmission Date: 20100115
  Serious: Yes (Other)
  Sender: FDA-Public Use
  Company Number: 09-001082

PATIENT
  Age: 18 Year
  Sex: Female
  Weight: 46.3 kg

DRUGS (1)
  1. LOESTRIN 24 FE [Suspect]
     Indication: DYSMENORRHOEA
     Dosage: 20/1000 UG, QD, ORAL
     Route: 048
     Dates: start: 20090628, end: 20090629

REACTIONS (6)
  - CONDITION AGGRAVATED [None]
  - DEHYDRATION [None]
  - DYSMENORRHOEA [None]
  - HEADACHE [None]
  - NAUSEA [None]
  - VOMITING [None]
